FAERS Safety Report 14119528 (Version 1)
Quarter: 2017Q4

REPORT INFORMATION
  Report Type: Spontaneous
  Country: US (occurrence: US)
  Receive Date: 20171024
  Receipt Date: 20171024
  Transmission Date: 20180321
  Serious: Yes (Other)
  Sender: FDA-Public Use
  Company Number: US-ASTELLAS-2017US042778

PATIENT
  Age: 74 Year
  Sex: Female

DRUGS (3)
  1. VESICARE [Suspect]
     Active Substance: SOLIFENACIN SUCCINATE
     Indication: PRODUCT USED FOR UNKNOWN INDICATION
     Dosage: UNK UNK, UNKNOWN FREQ.
     Route: 048
  2. VESICARE [Suspect]
     Active Substance: SOLIFENACIN SUCCINATE
     Route: 048
     Dates: start: 201709
  3. BOTOX [Suspect]
     Active Substance: ONABOTULINUMTOXINA
     Indication: PRODUCT USED FOR UNKNOWN INDICATION
     Dosage: UNK, UNKNOWN FREQ.
     Route: 065

REACTIONS (5)
  - Humerus fracture [Unknown]
  - Upper limb fracture [Unknown]
  - Treatment noncompliance [Unknown]
  - Bladder disorder [Unknown]
  - Fall [Unknown]

NARRATIVE: CASE EVENT DATE: 20160504
